FAERS Safety Report 7496788-6 (Version None)
Quarter: 2011Q2

REPORT INFORMATION
  Report Type: 
  Country: None (occurrence: None)
  Receive Date: 20110523
  Receipt Date: 20110513
  Transmission Date: 20111010
  Serious: Yes (Hospitalization, Other)
  Sender: FDA-Public Use
  Company Number: BE-ABBOTT-10P-013-0664035-00

PATIENT
  Sex: Male

DRUGS (11)
  1. ENTEROL [Concomitant]
     Indication: PRODUCT USED FOR UNKNOWN INDICATION
     Dosage: 2X 1/DAY
     Dates: start: 20100801
  2. HUMIRA [Suspect]
     Indication: PSORIATIC ARTHROPATHY
     Dates: start: 20090701, end: 20100724
  3. MEDROL [Concomitant]
     Dosage: 28 MG DAILY
  4. MEDROL [Concomitant]
     Indication: PSORIATIC ARTHROPATHY
     Dosage: 64 MG DAILY
     Dates: start: 20100801
  5. LEDERTREXATE [Concomitant]
     Indication: PSORIATIC ARTHROPATHY
     Dates: start: 20090701
  6. MEDROL [Concomitant]
     Dosage: 32 MG DAILY
  7. PRILOSEC [Concomitant]
     Indication: PRODUCT USED FOR UNKNOWN INDICATION
     Dosage: 20MG DAILY
     Dates: start: 20100801
  8. CELEBREX [Concomitant]
     Indication: PSORIATIC ARTHROPATHY
     Dates: start: 20101201
  9. PANTOMED [Concomitant]
     Indication: PRODUCT USED FOR UNKNOWN INDICATION
     Dosage: 4MG DAILY
     Dates: start: 20100801
  10. FOLIC ACID [Concomitant]
     Indication: PSORIATIC ARTHROPATHY
     Dosage: 1MG DAILY
  11. FOLAVIT [Concomitant]
     Indication: PRODUCT USED FOR UNKNOWN INDICATION
     Dosage: 4 MG DAILY
     Dates: start: 20100801

REACTIONS (16)
  - PERICARDITIS TUBERCULOUS [None]
  - CLOSTRIDIUM DIFFICILE COLITIS [None]
  - BACTERIAL INFECTION [None]
  - LUNG INFILTRATION [None]
  - RHEUMATOID ARTHRITIS [None]
  - PYREXIA [None]
  - DYSPNOEA [None]
  - VIRAL INFECTION [None]
  - TRANSAMINASES INCREASED [None]
  - TUBERCULOSIS [None]
  - PLEURAL EFFUSION [None]
  - HEPATITIS TOXIC [None]
  - PERICARDIAL EFFUSION [None]
  - CHEST PAIN [None]
  - INFECTION [None]
  - ATELECTASIS [None]
